FAERS Safety Report 6837410-9 (Version None)
Quarter: 2010Q3

REPORT INFORMATION
  Report Type: 
  Country: None (occurrence: None)
  Receive Date: 20100713
  Receipt Date: 20070511
  Transmission Date: 20110219
  Serious: No
  Sender: FDA-Public Use
  Company Number: US-PFIZER INC-2007039230

PATIENT
  Sex: Female
  Weight: 81.8 kg

DRUGS (13)
  1. CHANTIX [Suspect]
     Indication: SMOKING CESSATION THERAPY
     Dates: start: 20070427
  2. OXYCONTIN [Concomitant]
  3. MORPHINE SULFATE [Concomitant]
  4. LYRICA [Concomitant]
     Indication: NEURALGIA
  5. DORYX [Concomitant]
  6. CYMBALTA [Concomitant]
  7. PERCOCET [Concomitant]
  8. ROBAXIN [Concomitant]
  9. NAPROXEN [Concomitant]
     Indication: INFLAMMATION
  10. FENTANYL CITRATE [Concomitant]
     Indication: BREAKTHROUGH PAIN
  11. XOPENEX [Concomitant]
  12. ADVAIR DISKUS 100/50 [Concomitant]
  13. LIDODERM [Concomitant]

REACTIONS (9)
  - ABNORMAL DREAMS [None]
  - ANGER [None]
  - ANXIETY [None]
  - EMOTIONAL DISORDER [None]
  - FEELING ABNORMAL [None]
  - INSOMNIA [None]
  - IRRITABILITY [None]
  - MIDDLE INSOMNIA [None]
  - STRESS [None]
